FAERS Safety Report 7293266-4 (Version None)
Quarter: 2011Q1

REPORT INFORMATION
  Report Type: 
  Country: None (occurrence: None)
  Receive Date: 20110215
  Receipt Date: 20110201
  Transmission Date: 20110831
  Serious: Yes (Other)
  Sender: FDA-Public Use
  Company Number: US-JNJFOC-20110203968

PATIENT

DRUGS (3)
  1. DOCETAXEL [Suspect]
     Indication: NEOPLASM
     Dosage: DOSE LEVEL 1, DAY 1, 8, 15
     Route: 042
  2. DEXAMETHASONE [Concomitant]
     Indication: PREMEDICATION
     Dosage: DOSE LEVEL 1, DAYS 1, 8, AND 15.
     Route: 065
  3. DOXORUBICIN HYDROCHLORIDE [Suspect]
     Indication: NEOPLASM
     Dosage: DOSE LEVEL 1, DAY 1
     Route: 042

REACTIONS (1)
  - MUSCULOSKELETAL DISORDER [None]
